FAERS Safety Report 13699247 (Version 1)
Quarter: 2017Q2

REPORT INFORMATION
  Report Type: Spontaneous
  Country: GB (occurrence: GB)
  Receive Date: 20170628
  Receipt Date: 20170628
  Transmission Date: 20170830
  Serious: Yes (Other)
  Sender: FDA-Public Use
  Company Number: GB-BAUSCH-BL-2017-020121

PATIENT
  Age: 39 Year
  Sex: Female

DRUGS (10)
  1. ATRACURIUM [Concomitant]
     Active Substance: ATRACURIUM
     Indication: PRODUCT USED FOR UNKNOWN INDICATION
     Dates: start: 20170220, end: 20170220
  2. CHLOROCAIN [Concomitant]
     Indication: DENTAL LOCAL ANAESTHESIA
     Dates: start: 20170220, end: 20170220
  3. DEXAMETHASONE. [Concomitant]
     Active Substance: DEXAMETHASONE
     Indication: PRODUCT USED FOR UNKNOWN INDICATION
  4. DESFLURANE. [Concomitant]
     Active Substance: DESFLURANE
     Indication: GENERAL ANAESTHESIA
  5. FENTANYL. [Concomitant]
     Active Substance: FENTANYL
     Indication: PAIN
     Dates: start: 20170220, end: 20170220
  6. ONDANSETRON [Concomitant]
     Active Substance: ONDANSETRON
     Indication: NAUSEA
     Dates: start: 20170220, end: 20170220
  7. PROPOFOL. [Concomitant]
     Active Substance: PROPOFOL
     Indication: GENERAL ANAESTHESIA
     Dates: start: 20170220, end: 20170220
  8. PHENYLEPHRINE HYDROCHLORIDE. [Suspect]
     Active Substance: PHENYLEPHRINE HYDROCHLORIDE
     Indication: ENDOTRACHEAL INTUBATION
     Dosage: 0.5 PERCENT W/V TOPICAL SOLUTION
     Route: 045
     Dates: start: 20170220, end: 20170220
  9. ADRENALINE AND LIDOCAINE [Suspect]
     Active Substance: EPINEPHRINE\LIDOCAINE
     Indication: DENTAL LOCAL ANAESTHESIA
     Dosage: DENTAL BLOCK INFILTRATION
     Route: 050
     Dates: start: 20170220, end: 20170220
  10. LIDOCAINE HYDROCHLORIDE. [Suspect]
     Active Substance: LIDOCAINE HYDROCHLORIDE
     Indication: ENDOTRACHEAL INTUBATION
     Dosage: 5 PERCENT W/V TOPICAL SOLUTION
     Route: 045
     Dates: start: 20170220, end: 20170220

REACTIONS (4)
  - Product use issue [Recovered/Resolved]
  - Bradycardia [Recovered/Resolved]
  - Hypertension [Recovered/Resolved]
  - Ventricular dyskinesia [Recovered/Resolved]

NARRATIVE: CASE EVENT DATE: 20170220
